FAERS Safety Report 6958925-9 (Version None)
Quarter: 2010Q3

REPORT INFORMATION
  Report Type: 
  Country: None (occurrence: None)
  Receive Date: 20100831
  Receipt Date: 20100823
  Transmission Date: 20110219
  Serious: Yes (Other)
  Sender: FDA-Public Use
  Company Number: BE-BAYER-201036673GPV

PATIENT
  Age: 53 Year
  Sex: Female

DRUGS (3)
  1. MIRENA [Suspect]
     Indication: CONTRACEPTION
     Route: 015
     Dates: start: 20000101, end: 20050101
  2. MIRENA [Suspect]
     Route: 015
     Dates: start: 20050101, end: 20100101
  3. ESTROGEL [Concomitant]
     Indication: HORMONE REPLACEMENT THERAPY

REACTIONS (3)
  - ENDOMETRIAL CANCER [None]
  - GENITAL HAEMORRHAGE [None]
  - POST PROCEDURAL HAEMORRHAGE [None]
